FAERS Safety Report 7976493-X (Version None)
Quarter: 2011Q4

REPORT INFORMATION
  Report Type: 
  Country: None (occurrence: None)
  Receive Date: 20111213
  Receipt Date: 20111024
  Transmission Date: 20120403
  Serious: No
  Sender: FDA-Public Use
  Company Number: US-AMGEN-USASP2011054971

PATIENT
  Age: 41 Year
  Sex: Female

DRUGS (2)
  1. ENBREL [Suspect]
     Indication: ANKYLOSING SPONDYLITIS
     Dosage: 50 MG, QWK
     Dates: start: 20110923
  2. SULFASALAZINE [Concomitant]
     Dosage: 2 MG, QD
     Dates: start: 20100401

REACTIONS (3)
  - INJECTION SITE MASS [None]
  - INJECTION SITE INDURATION [None]
  - INJECTION SITE PAIN [None]
